FAERS Safety Report 10358498 (Version 1)
Quarter: 2014Q3

REPORT INFORMATION
  Report Type: Spontaneous
  Country: ES (occurrence: ES)
  Receive Date: 20140801
  Receipt Date: 20140801
  Transmission Date: 20150326
  Serious: Yes (Death)
  Sender: FDA-Public Use
  Company Number: ES-ABBVIE-14P-144-1266129-00

PATIENT
  Age: 69 Year
  Sex: Male

DRUGS (3)
  1. IMUREL [Suspect]
     Active Substance: AZATHIOPRINE SODIUM
     Indication: PRODUCT USED FOR UNKNOWN INDICATION
  2. HUMIRA [Suspect]
     Active Substance: ADALIMUMAB
     Indication: RHEUMATOID ARTHRITIS
     Dosage: INDUCTION DOSE
     Dates: start: 201407
  3. HUMIRA [Suspect]
     Active Substance: ADALIMUMAB
     Indication: COLITIS ULCERATIVE

REACTIONS (7)
  - Intestinal perforation [Fatal]
  - Thrombocytopenia [Fatal]
  - Leukopenia [Unknown]
  - Anaemia [Unknown]
  - Colitis ischaemic [Fatal]
  - Atrial fibrillation [Fatal]
  - Listeria sepsis [Fatal]

NARRATIVE: CASE EVENT DATE: 201407
